FAERS Safety Report 8005272-2 (Version None)
Quarter: 2011Q4

REPORT INFORMATION
  Report Type: 
  Country: None (occurrence: None)
  Receive Date: 20111223
  Receipt Date: 20111222
  Transmission Date: 20120403
  Serious: Yes (Death, Hospitalization)
  Sender: FDA-Public Use
  Company Number: US-B.I. PHARMACEUTICALS,INC./RIDGEFIELD-2011-BP-27326BP

PATIENT
  Sex: Female

DRUGS (7)
  1. BETAPACE [Concomitant]
     Route: 048
     Dates: start: 20060101
  2. CLONIDINE [Concomitant]
     Route: 048
  3. METOLAZONE [Concomitant]
     Indication: CARDIAC FAILURE CONGESTIVE
     Route: 048
     Dates: start: 20090819
  4. CELEBREX [Concomitant]
     Route: 048
  5. PRADAXA [Suspect]
     Indication: ATRIAL FIBRILLATION
     Dosage: 300 MG
     Route: 048
     Dates: start: 20110516, end: 20111118
  6. ZESTRIL [Concomitant]
     Route: 048
  7. LASIX [Concomitant]
     Route: 048

REACTIONS (2)
  - RENAL IMPAIRMENT [None]
  - GASTROINTESTINAL HAEMORRHAGE [None]
